FAERS Safety Report 8032320-6 (Version None)
Quarter: 2011Q4

REPORT INFORMATION
  Report Type: 
  Country: None (occurrence: None)
  Receive Date: 20111201
  Receipt Date: 20110916
  Transmission Date: 20120403
  Serious: Yes (Other)
  Sender: FDA-Public Use
  Company Number: 201109029

PATIENT
  Age: 61 Year
  Sex: Female

DRUGS (8)
  1. MULTIVIRAMINS (ERGOCALCIFEROL) [Concomitant]
  2. CALCIUM CARBONATE [Concomitant]
  3. ALLEGRA [Concomitant]
  4. XIAFLEX [Suspect]
     Indication: DUPUYTREN'S CONTRACTURE
     Dosage: 1 IN 1 D, INTRALESIONAL
     Route: 026
     Dates: start: 20110428, end: 20110428
  5. PROCARDIA [Concomitant]
  6. METHOTREXATE [Concomitant]
  7. PRILOSEC [Concomitant]
  8. FOLIC ACID [Concomitant]

REACTIONS (1)
  - TENDON RUPTURE [None]
